FAERS Safety Report 10062874 (Version 1)
Quarter: 2014Q1

REPORT INFORMATION
  Report Type: Spontaneous
  Country: US (occurrence: None)
  Receive Date: 20140328
  Receipt Date: 20140328
  Transmission Date: 20141002
  Serious: No
  Sender: FDA-Public Use
  Company Number: CABO-14004056

PATIENT
  Sex: 0

DRUGS (1)
  1. COMETRIQ [Suspect]
     Indication: MEDULLARY THYROID CANCER
     Route: 048
     Dates: start: 2013

REACTIONS (1)
  - Abscess [None]
